FAERS Safety Report 10681345 (Version 3)
Quarter: 2015Q1

REPORT INFORMATION
  Report Type: Spontaneous
  Country: US (occurrence: US)
  Receive Date: 20141230
  Receipt Date: 20150216
  Transmission Date: 20150720
  Serious: No
  Sender: FDA-Public Use
  Company Number: US-AMGEN INC.-USASP2014100907

PATIENT
  Age: 31 Year
  Sex: Male

DRUGS (1)
  1. ENBREL [Suspect]
     Active Substance: ETANERCEPT
     Indication: PSORIASIS
     Dosage: 50 MG,  EVERY 3 DAYS
     Route: 065
     Dates: start: 20140102

REACTIONS (2)
  - Erythema [Unknown]
  - Psoriasis [Unknown]

NARRATIVE: CASE EVENT DATE: 201409
